FAERS Safety Report 18334991 (Version 2)
Quarter: 2020Q4

REPORT INFORMATION
  Report Type: Spontaneous
  Country: CN (occurrence: CN)
  Receive Date: 20201001
  Receipt Date: 20201002
  Transmission Date: 20210113
  Serious: Yes (Death, Hospitalization, Other)
  Sender: FDA-Public Use
  Company Number: CN-ASTRAZENECA-2020SF25947

PATIENT
  Age: 58 Year
  Sex: Female
  Weight: 47.5 kg

DRUGS (1)
  1. IMFINZI [Suspect]
     Active Substance: DURVALUMAB
     Indication: NON-SMALL CELL LUNG CANCER STAGE III
     Dosage: 500MG/10ML, 120MG/2.4ML; (THE LAST DOSE WAS 620MG/PERIOD), EVERY TWO WEEKS FOR 4 TIMES
     Route: 042
     Dates: start: 20200410, end: 20200424

REACTIONS (11)
  - Feeding disorder [Fatal]
  - Constipation [Unknown]
  - Blood creatinine increased [Unknown]
  - Abdominal discomfort [Unknown]
  - Acute kidney injury [Fatal]
  - Abnormal behaviour [Unknown]
  - Coma [Unknown]
  - Hypotension [Unknown]
  - Cardiac arrest [Unknown]
  - Malignant neoplasm progression [Unknown]
  - Intestinal infarction [Unknown]
